FAERS Safety Report 17530977 (Version 1)
Quarter: 2020Q1

REPORT INFORMATION
  Report Type: Spontaneous
  Country: UA (occurrence: UA)
  Receive Date: 20200312
  Receipt Date: 20200312
  Transmission Date: 20200409
  Serious: Yes (Other)
  Sender: FDA-Public Use
  Company Number: UA-DRREDDYS-GPV/UKR/20/0120501

PATIENT
  Age: 33 Year
  Sex: Female

DRUGS (1)
  1. OMEZ [Suspect]
     Active Substance: OMEPRAZOLE
     Indication: GASTRIC ULCER

REACTIONS (2)
  - Gastric cancer [Unknown]
  - Intestinal metaplasia [Unknown]
